FAERS Safety Report 7980157-6 (Version None)
Quarter: 2011Q4

REPORT INFORMATION
  Report Type: 
  Country: None (occurrence: None)
  Receive Date: 20111214
  Receipt Date: 20111201
  Transmission Date: 20120403
  Serious: Yes (Death, Hospitalization, Other)
  Sender: FDA-Public Use
  Company Number: US-ACTELION-A-NJ2011-57346

PATIENT

DRUGS (4)
  1. LASIX [Concomitant]
  2. VENTAVIS [Suspect]
     Indication: PULMONARY ARTERIAL HYPERTENSION
     Dosage: 5 ?G, UNK
     Route: 055
     Dates: start: 20111116, end: 20111121
  3. COUMADIN [Concomitant]
  4. ASPIRIN [Concomitant]

REACTIONS (11)
  - DEATH [None]
  - WOUND HAEMORRHAGE [None]
  - MALAISE [None]
  - BACK PAIN [None]
  - DIALYSIS [None]
  - FISTULA REPAIR [None]
  - BLOOD GLUCOSE DECREASED [None]
  - NECK PAIN [None]
  - HEADACHE [None]
  - PROCEDURAL PAIN [None]
  - DYSPNOEA [None]
